FAERS Safety Report 16383316 (Version 1)
Quarter: 2019Q2

REPORT INFORMATION
  Report Type: Spontaneous
  Country: US (occurrence: US)
  Receive Date: 20190515
  Receipt Date: 20190515
  Transmission Date: 20190711
  Serious: No
  Sender: FDA-Public Use
  Company Number: None

PATIENT
  Age: 76 Year
  Sex: Female
  Weight: 81 kg

DRUGS (3)
  1. LOVASTATIN 20 MG [Suspect]
     Active Substance: LOVASTATIN
     Indication: BLOOD CHOLESTEROL INCREASED
     Dosage: ?          QUANTITY:1 TABLET(S);?
     Route: 048
     Dates: start: 20190201
  2. ONLY LOVASTATIN [Concomitant]
  3. VITAMIN (1) EACH DAY [Concomitant]

REACTIONS (3)
  - Fatigue [None]
  - Muscular weakness [None]
  - Product substitution issue [None]

NARRATIVE: CASE EVENT DATE: 20190501
